FAERS Safety Report 11538670 (Version 1)
Quarter: 2015Q3

REPORT INFORMATION
  Report Type: Spontaneous
  Country: GB (occurrence: None)
  Receive Date: 20150921
  Receipt Date: 20150921
  Transmission Date: 20151125
  Serious: No
  Sender: FDA-Public Use
  Company Number: GB2015K5469SPO

PATIENT
  Age: 22 Year
  Sex: Female
  Weight: 76 kg

DRUGS (4)
  1. SALBUTAMOL [Concomitant]
     Active Substance: ALBUTEROL
  2. MARVELON (DESOGESTREL, ETHINYLOESTRADIOL) [Concomitant]
  3. SERETIDE [Concomitant]
     Active Substance: FLUTICASONE FUROATE\SALMETEROL XINAFOATE
  4. LANSOPRAZOLE GENERIC (LANSOPRAZOLE) UNKNOWN [Suspect]
     Active Substance: LANSOPRAZOLE
     Indication: GASTRITIS
     Route: 048
     Dates: start: 201504, end: 201505

REACTIONS (9)
  - Therapy cessation [None]
  - Palpitations [None]
  - Disease recurrence [None]
  - Anxiety [None]
  - Hallucination [None]
  - Tachycardia [None]
  - Gastrooesophageal reflux disease [None]
  - Bone pain [None]
  - Pelvic pain [None]
